FAERS Safety Report 6472085-2 (Version None)
Quarter: 2009Q4

REPORT INFORMATION
  Report Type: 
  Country: None (occurrence: None)
  Receive Date: 20091203
  Receipt Date: 20080408
  Transmission Date: 20100525
  Serious: Yes (Hospitalization)
  Sender: FDA-Public Use
  Company Number: FR-ELI_LILLY_AND_COMPANY-FR200804002666

PATIENT
  Age: 40 Year
  Sex: Male

DRUGS (3)
  1. CYMBALTA [Suspect]
     Indication: DEPRESSION
     Dosage: 60 MG, DAILY (1/D)
     Route: 048
     Dates: start: 20080124
  2. SUBUTEX [Concomitant]
     Route: 048
  3. STABLON [Concomitant]
     Indication: DEPRESSION
     Route: 048

REACTIONS (3)
  - CONVULSION [None]
  - HYPERTHERMIA [None]
  - NERVOUS SYSTEM DISORDER [None]
